FAERS Safety Report 8413726-X (Version None)
Quarter: 2012Q2

REPORT INFORMATION
  Report Type: 
  Country: None (occurrence: None)
  Receive Date: 20120605
  Receipt Date: 20120529
  Transmission Date: 20120825
  Serious: Yes (Other)
  Sender: FDA-Public Use
  Company Number: JP-PFIZER INC-2012129153

PATIENT

DRUGS (1)
  1. LYRICA [Suspect]
     Route: 048

REACTIONS (2)
  - FACE OEDEMA [None]
  - RENAL IMPAIRMENT [None]
